FAERS Safety Report 9074018 (Version 1)
Quarter: 2013Q1

REPORT INFORMATION
  Report Type: Report from Study
  Country: US (occurrence: US)
  Receive Date: 20130129
  Receipt Date: 20130129
  Transmission Date: 20140127
  Serious: No
  Sender: FDA-Public Use
  Company Number: US-ABBOTT-12P-163-0916448-00

PATIENT
  Age: 58 Year
  Sex: Female

DRUGS (38)
  1. HUMIRA 40 MG/0.8 ML PEN [Suspect]
     Indication: CROHN^S DISEASE
     Dates: start: 20120303, end: 20120303
  2. HUMIRA 40 MG/0.8 ML PEN [Suspect]
     Dates: start: 20120317, end: 20120317
  3. HUMIRA 40 MG/0.8 ML PEN [Suspect]
  4. IRON [Suspect]
     Indication: ANAEMIA
     Dosage: INFUSION
     Route: 042
  5. BETHANECHOL [Concomitant]
     Indication: PRODUCT USED FOR UNKNOWN INDICATION
  6. ERYTHROMYCIN [Concomitant]
     Indication: PRODUCT USED FOR UNKNOWN INDICATION
  7. REGLAN [Concomitant]
     Indication: PRODUCT USED FOR UNKNOWN INDICATION
  8. DOMPERIDONE [Concomitant]
     Indication: PRODUCT USED FOR UNKNOWN INDICATION
  9. BENTYL [Concomitant]
     Indication: ABDOMINAL PAIN
  10. OMEPRAZOLE [Concomitant]
     Indication: GASTRITIS
     Dosage: IN THE MORNING
  11. LAMICTAL [Concomitant]
     Indication: PRODUCT USED FOR UNKNOWN INDICATION
     Dosage: IN THE MORNING
  12. RITALIN [Concomitant]
     Indication: PRODUCT USED FOR UNKNOWN INDICATION
     Dosage: IN THE MORNING
  13. RITALIN [Concomitant]
     Dosage: IN THE AFTERNOON
  14. EMSAM [Concomitant]
     Indication: UNEVALUABLE EVENT
     Dosage: 24 HOUR PATCH
  15. MULTIVITAMIN [Concomitant]
     Indication: PRODUCT USED FOR UNKNOWN INDICATION
     Dosage: DAILY
  16. CALCIUM CITRATE [Concomitant]
     Indication: PRODUCT USED FOR UNKNOWN INDICATION
     Dosage: IN THE MORNING
  17. CALCIUM CITRATE [Concomitant]
     Dosage: AT BEDTIME
  18. MAGNESIUM GLYCINATE [Concomitant]
     Indication: PRODUCT USED FOR UNKNOWN INDICATION
     Dosage: IN THE MORNING
  19. CALCITRIOL [Concomitant]
     Indication: VITAMIN D
     Dosage: 3 TIMES PER WEEK MON., WEDS., AND FRI.
  20. SYNTHROID [Concomitant]
     Indication: PRODUCT USED FOR UNKNOWN INDICATION
     Dosage: 5 TIMES PER WEEK (SKIP SUN. AND THURS.)
  21. BACLOFEN [Concomitant]
     Indication: MUSCLE SPASMS
  22. BACLOFEN [Concomitant]
     Indication: MUSCLE SPASMS
  23. REQUIP [Concomitant]
     Indication: MUSCLE SPASMS
  24. REQUIP [Concomitant]
     Indication: MUSCLE SPASMS
  25. AMBIEN CR [Concomitant]
     Indication: INSOMNIA
     Dosage: AT BEDTIME
  26. CLONAZEPAM [Concomitant]
     Indication: ANXIETY
     Dosage: 1 TO 1 1/2 TABS, AS REQUIRED
  27. LASIX [Concomitant]
     Indication: PRODUCT USED FOR UNKNOWN INDICATION
     Dosage: 20 MG DAILY
  28. VICODIN [Concomitant]
     Indication: PAIN
     Dosage: 1 TO 2 TABS, AS REQUIRED
  29. FLEXERIL [Concomitant]
     Indication: BACK PAIN
     Dosage: 10 TO 20 MG, AS REQUIRED
  30. NEURONTIN [Concomitant]
     Indication: BACK PAIN
  31. B12 [Concomitant]
     Indication: PRODUCT USED FOR UNKNOWN INDICATION
     Dosage: 1CC MONTHLY
  32. OMEGA 3 [Concomitant]
     Indication: PRODUCT USED FOR UNKNOWN INDICATION
  33. RECLAST INFUSION [Concomitant]
     Indication: OSTEOPOROSIS
     Dosage: ONCE YEARLY
  34. EXCEDRIN ASPIRIN FREE [Concomitant]
     Indication: PRODUCT USED FOR UNKNOWN INDICATION
  35. VITAMIN D [Concomitant]
     Indication: PRODUCT USED FOR UNKNOWN INDICATION
     Dosage: WEEKLY (PIERCE IT/SQUEEZE IT UNDER TONGUE)
  36. ZOFRAN [Concomitant]
     Indication: NAUSEA
     Route: 060
  37. COMPAZINE [Concomitant]
     Indication: NAUSEA
  38. ORABASE PASTE [Concomitant]
     Indication: CROHN^S DISEASE
     Dosage: TO THE TONGUE

REACTIONS (3)
  - Injection site haemorrhage [Unknown]
  - Oedema peripheral [Unknown]
  - Injection site pain [Unknown]
